FAERS Safety Report 8520603-2 (Version None)
Quarter: 2012Q3

REPORT INFORMATION
  Report Type: 
  Country: None (occurrence: None)
  Receive Date: 20120719
  Receipt Date: 20120716
  Transmission Date: 20120928
  Serious: Yes (Other)
  Sender: FDA-Public Use
  Company Number: TW-PFIZER INC-2012170093

PATIENT
  Age: 32 Year
  Sex: Female

DRUGS (1)
  1. GEODON [Suspect]
     Indication: HALLUCINATION, AUDITORY
     Dosage: 40MG ORALLY ONCE PER DAY
     Route: 048
     Dates: start: 20100101, end: 20120601

REACTIONS (1)
  - PERONEAL NERVE PALSY [None]
